FAERS Safety Report 15566342 (Version 3)
Quarter: 2018Q4

REPORT INFORMATION
  Report Type: Spontaneous
  Country: DE (occurrence: DE)
  Receive Date: 20181030
  Receipt Date: 20181219
  Transmission Date: 20190205
  Serious: Yes (Other)
  Sender: FDA-Public Use
  Company Number: DE-PFIZER INC-2018436996

PATIENT
  Age: 70 Year
  Sex: Male
  Weight: 68 kg

DRUGS (4)
  1. AMITRIPTYLIN [Concomitant]
     Active Substance: AMITRIPTYLINE
     Indication: FACIAL PAIN
     Dosage: 10 MG, DAILY
     Dates: start: 2014
  2. VIAGRA [Suspect]
     Active Substance: SILDENAFIL CITRATE
     Indication: ERECTILE DYSFUNCTION
     Dosage: 50 MG, WEEKLY
     Dates: start: 2012, end: 201706
  3. BISOPROLOL [Concomitant]
     Active Substance: BISOPROLOL
     Indication: HYPERTENSION
     Dosage: 2.5 MG, DAILY
     Dates: start: 2000
  4. VALSARTAN. [Concomitant]
     Active Substance: VALSARTAN
     Indication: HYPERTENSION
     Dosage: 40 MG, UNK
     Dates: start: 2014

REACTIONS (4)
  - Macular oedema [Unknown]
  - Retinal vein occlusion [Unknown]
  - Retinal vein thrombosis [Recovered/Resolved with Sequelae]
  - Visual impairment [Unknown]

NARRATIVE: CASE EVENT DATE: 201208
